FAERS Safety Report 7493737-1 (Version None)
Quarter: 2011Q2

REPORT INFORMATION
  Report Type: 
  Country: None (occurrence: None)
  Receive Date: 20110513
  Receipt Date: 20110502
  Transmission Date: 20111010
  Serious: Yes (Hospitalization)
  Sender: FDA-Public Use
  Company Number: DSM-2011-00459

PATIENT
  Age: 63 Year
  Sex: Female

DRUGS (2)
  1. OLPREZIDE (HYDROCHLOROTHIAZIDE, OLMESARTAN MEDOXOMIL) (TABLET) (HYDROC [Suspect]
     Indication: HYPERTENSION
     Dosage: 20/12.5 MG, ORAL
     Route: 048
     Dates: start: 20110306
  2. PROPAFENONE HYDROCHLORIDE [Suspect]
     Indication: CARDIAC FIBRILLATION
     Dosage: 650 MG,ORAL
     Route: 048
     Dates: start: 20110306

REACTIONS (2)
  - HYPERTENSION [None]
  - PALPITATIONS [None]
